FAERS Safety Report 19666383 (Version 2)
Quarter: 2023Q4

REPORT INFORMATION
  Report Type: Spontaneous
  Country: IT (occurrence: IT)
  Receive Date: 20210806
  Receipt Date: 20231229
  Transmission Date: 20240110
  Serious: Yes (Other)
  Sender: FDA-Public Use
  Company Number: IT-SA-2021SA043749

PATIENT
  Age: 77 Year
  Sex: Female

DRUGS (16)
  1. OXALIPLATIN [Suspect]
     Active Substance: OXALIPLATIN
     Indication: Adenocarcinoma of colon
     Dosage: INFUSION, 85 MG/M2
     Route: 042
     Dates: start: 201901, end: 201901
  2. OXALIPLATIN [Suspect]
     Active Substance: OXALIPLATIN
     Indication: Metastases to peritoneum
     Dosage: INFUSION, 85 MG/M2
     Route: 042
     Dates: start: 2019, end: 2019
  3. OXALIPLATIN [Suspect]
     Active Substance: OXALIPLATIN
     Dosage: 25% DOSE REDUCTION
     Route: 042
  4. OXALIPLATIN [Suspect]
     Active Substance: OXALIPLATIN
     Dosage: 25% DOSE REDUCTION
     Route: 042
  5. FLUOROURACIL [Suspect]
     Active Substance: FLUOROURACIL
     Indication: Metastases to peritoneum
     Dosage: 2,400 MG/MQ OVER 46 H
     Route: 042
     Dates: start: 201901, end: 201901
  6. FLUOROURACIL [Suspect]
     Active Substance: FLUOROURACIL
     Indication: Adenocarcinoma of colon
     Dosage: 2,400 MG/MQ OVER 46 H
     Route: 042
     Dates: start: 2019, end: 2019
  7. FLUOROURACIL [Suspect]
     Active Substance: FLUOROURACIL
     Dosage: UNK UNK, QCY
     Route: 042
  8. FLUOROURACIL [Suspect]
     Active Substance: FLUOROURACIL
     Dosage: UNK UNK, QCY
     Route: 042
  9. LEUCOVORIN [Suspect]
     Active Substance: LEUCOVORIN\LEUCOVORIN CALCIUM
     Indication: Adenocarcinoma of colon
     Dosage: 200 MG/M2, QCY
     Route: 042
     Dates: start: 201901, end: 201901
  10. LEUCOVORIN [Suspect]
     Active Substance: LEUCOVORIN\LEUCOVORIN CALCIUM
     Indication: Metastases to peritoneum
     Dosage: 200 MG/M2, QCY
     Route: 042
     Dates: start: 2019, end: 2019
  11. LEUCOVORIN [Suspect]
     Active Substance: LEUCOVORIN\LEUCOVORIN CALCIUM
     Dosage: 25% DOSE REDUCTION
     Route: 042
  12. LEUCOVORIN [Suspect]
     Active Substance: LEUCOVORIN\LEUCOVORIN CALCIUM
     Dosage: 25% DOSE REDUCTION
     Route: 042
  13. PANITUMUMAB [Suspect]
     Active Substance: PANITUMUMAB
     Indication: Adenocarcinoma of colon
     Dosage: 6 MG/KG, QCY
     Route: 065
     Dates: start: 201901, end: 2019
  14. PANITUMUMAB [Suspect]
     Active Substance: PANITUMUMAB
     Dosage: 6 MILLIGRAM/KILOGRAM
     Route: 065
     Dates: start: 2019, end: 2019
  15. PANITUMUMAB [Suspect]
     Active Substance: PANITUMUMAB
     Dosage: 25% DOSE REDUCTION
     Route: 065
  16. PANITUMUMAB [Suspect]
     Active Substance: PANITUMUMAB
     Dosage: 25% DOSE REDUCTION
     Route: 065

REACTIONS (4)
  - Palmar-plantar erythrodysaesthesia syndrome [Unknown]
  - Neuropathy peripheral [Unknown]
  - Stomatitis [Unknown]
  - Diarrhoea [Unknown]

NARRATIVE: CASE EVENT DATE: 20190101
